FAERS Safety Report 5312117-8 (Version None)
Quarter: 2007Q2

REPORT INFORMATION
  Report Type: 
  Country: None (occurrence: None)
  Receive Date: 20070430
  Receipt Date: 20060614
  Transmission Date: 20071010
  Serious: No
  Sender: FDA-Public Use
  Company Number: 2006UW12733

PATIENT
  Age: 63 Year
  Sex: Female
  Weight: 66.7 kg

DRUGS (9)
  1. NEXIUM [Suspect]
     Indication: REFLUX OESOPHAGITIS
     Route: 048
     Dates: start: 20040101
  2. GLYBURIDE [Concomitant]
  3. KLOR-CON [Concomitant]
  4. CLONIDINE [Concomitant]
  5. TRAMADOL HCL [Concomitant]
  6. MICARDIS [Concomitant]
  7. FLUOXETINE [Concomitant]
  8. SULAR [Concomitant]
  9. CELEBREX [Concomitant]

REACTIONS (1)
  - ILL-DEFINED DISORDER [None]
